APPROVED DRUG PRODUCT: PROCAN SR
Active Ingredient: PROCAINAMIDE HYDROCHLORIDE
Strength: 1GM
Dosage Form/Route: TABLET, EXTENDED RELEASE;ORAL
Application: A088489 | Product #001
Applicant: PARKEDALE PHARMACEUTICALS INC
Approved: Jan 16, 1985 | RLD: No | RS: No | Type: DISCN